FAERS Safety Report 21720532 (Version 2)
Quarter: 2024Q4

REPORT INFORMATION
  Report Type: Report from Study
  Country: US (occurrence: US)
  Receive Date: 20221213
  Receipt Date: 20241228
  Transmission Date: 20250115
  Serious: Yes (Other)
  Sender: ROCHE
  Company Number: US-ROCHE-3232786

PATIENT
  Age: 57 Year
  Sex: Female
  Weight: 103.42 kg

DRUGS (4)
  1. OCREVUS [Suspect]
     Active Substance: OCRELIZUMAB
     Indication: Primary progressive multiple sclerosis
     Route: 042
     Dates: start: 202005, end: 20221102
  2. OXYBUTYNIN [Concomitant]
     Active Substance: OXYBUTYNIN
     Route: 048
  3. BACLOFEN [Concomitant]
     Active Substance: BACLOFEN
  4. MELOXICAM [Concomitant]
     Active Substance: MELOXICAM

REACTIONS (2)
  - Urinary tract infection [Not Recovered/Not Resolved]
  - Multiple sclerosis pseudo relapse [Recovered/Resolved]
